FAERS Safety Report 14753642 (Version 1)
Quarter: 2018Q2

REPORT INFORMATION
  Report Type: Spontaneous
  Country: US (occurrence: US)
  Receive Date: 20180412
  Receipt Date: 20180412
  Transmission Date: 20180711
  Serious: Yes (Hospitalization)
  Sender: FDA-Public Use
  Company Number: US-TEVA-2018-US-879681

PATIENT
  Age: 55 Year
  Sex: Female

DRUGS (7)
  1. ISOSORBIDE MONONITRATE. [Concomitant]
     Active Substance: ISOSORBIDE MONONITRATE
     Route: 065
  2. WARFARIN [Suspect]
     Active Substance: WARFARIN
     Dosage: INTERMITTANTLY
     Route: 065
  3. SEVELAMER [Concomitant]
     Active Substance: SEVELAMER
     Dosage: 1600MG THREE TIMES A DAY
     Route: 065
  4. ASPIRIN. [Concomitant]
     Active Substance: ASPIRIN
     Route: 065
  5. SEVELAMER [Concomitant]
     Active Substance: SEVELAMER
     Dosage: 2400 MILLIGRAM DAILY;
     Route: 065
  6. METOPROLOL. [Concomitant]
     Active Substance: METOPROLOL
     Route: 065
  7. ATORVASTATIN [Concomitant]
     Active Substance: ATORVASTATIN
     Route: 065

REACTIONS (1)
  - Calciphylaxis [Recovering/Resolving]
